FAERS Safety Report 4541296-5 (Version None)
Quarter: 2004Q4

REPORT INFORMATION
  Report Type: 
  Country: None (occurrence: None)
  Receive Date: 20041228
  Receipt Date: 20041216
  Transmission Date: 20050328
  Serious: Yes (Hospitalization, Other)
  Sender: FDA-Public Use
  Company Number: USA041182947

PATIENT
  Age: 48 Year
  Sex: Female
  Weight: 48 kg

DRUGS (1)
  1. CYMBALTA [Suspect]
     Dosage: 30 MG

REACTIONS (1)
  - HEPATITIS [None]
